FAERS Safety Report 13022561 (Version 1)
Quarter: 2016Q4

REPORT INFORMATION
  Report Type: Spontaneous
  Country: BE (occurrence: BE)
  Receive Date: 20161213
  Receipt Date: 20161213
  Transmission Date: 20170207
  Serious: Yes (Life-Threatening, Hospitalization)
  Sender: FDA-Public Use
  Company Number: BE-HORIZON-VIM-0254-2016

PATIENT
  Age: 60 Year
  Sex: Female
  Weight: 72 kg

DRUGS (8)
  1. BELLOZAL [Concomitant]
     Indication: MITE ALLERGY
     Route: 048
  2. I-THYROXIN 75 [Concomitant]
     Indication: ILL-DEFINED DISORDER
     Route: 048
  3. TRAZODON [Concomitant]
     Active Substance: TRAZODONE HYDROCHLORIDE
     Indication: INSOMNIA
     Route: 048
  4. BELLOZAL [Concomitant]
     Indication: SEASONAL ALLERGY
     Route: 048
  5. PROBICRAN [Concomitant]
     Indication: CYSTITIS
     Route: 048
  6. VIMOVO [Suspect]
     Active Substance: ESOMEPRAZOLE MAGNESIUM\NAPROXEN
     Indication: OSTEOARTHRITIS
     Dosage: 500/20 MG TWICE DAILY
     Route: 048
     Dates: start: 20160824, end: 20161025
  7. MOMETASONE [Concomitant]
     Active Substance: MOMETASONE
     Indication: RHINITIS ALLERGIC
     Route: 045
  8. PROLIA [Concomitant]
     Active Substance: DENOSUMAB
     Indication: OSTEOPOROSIS
     Dosage: 1 SYRINGE/INJECTION 2 TIMES PER YEAR, DURATION: 3 YEARS
     Route: 058

REACTIONS (5)
  - Feeling cold [Recovering/Resolving]
  - Melaena [Recovering/Resolving]
  - Fatigue [Recovering/Resolving]
  - Dyspnoea at rest [Recovering/Resolving]
  - Asthenia [Recovering/Resolving]

NARRATIVE: CASE EVENT DATE: 20161023
